FAERS Safety Report 12950578 (Version 1)
Quarter: 2016Q4

REPORT INFORMATION
  Report Type: Spontaneous
  Country: US (occurrence: US)
  Receive Date: 20161116
  Receipt Date: 20161116
  Transmission Date: 20170207
  Serious: No
  Sender: FDA-Public Use
  Company Number: US-ZYDUS-009344

PATIENT
  Age: 55 Year
  Sex: Male

DRUGS (6)
  1. MORPHINE [Suspect]
     Active Substance: MORPHINE
     Indication: PAIN
     Route: 048
     Dates: start: 20151013
  2. LEVOTHYROXINE/LEVOTHYROXINE SODIUM [Concomitant]
     Indication: HYPOTHYROIDISM
  3. ANASTROZOLE. [Concomitant]
     Active Substance: ANASTROZOLE
     Indication: HYPOTHALAMO-PITUITARY DISORDER
  4. TESTOSTERONE/TESTOSTERONE CIPIONATE/TESTOSTERONE CYCLOHEXYL PROPIO/TESTOSTERONE DECANOATE/TESTOSTERO [Concomitant]
     Indication: HYPOTHALAMO-PITUITARY DISORDER
  5. LOSARTAN. [Concomitant]
     Active Substance: LOSARTAN
     Indication: HYPERTENSION
  6. HYDROCHLOROTHIAZIDE/TRIAMTERENE [Concomitant]
     Indication: HYPERTENSION

REACTIONS (8)
  - Lacrimation increased [Recovered/Resolved]
  - Diarrhoea [Recovered/Resolved]
  - Vomiting [Recovered/Resolved]
  - Sneezing [Recovered/Resolved]
  - Detoxification [Recovered/Resolved]
  - Retching [Recovered/Resolved]
  - Nausea [Recovered/Resolved]
  - Drug ineffective [Recovered/Resolved]

NARRATIVE: CASE EVENT DATE: 20151013
